FAERS Safety Report 4313785-X (Version None)
Quarter: 2004Q1

REPORT INFORMATION
  Report Type: 
  Country: None (occurrence: None)
  Receive Date: 20040305
  Receipt Date: 20040226
  Transmission Date: 20041129
  Serious: Yes (Life-Threatening, Hospitalization)
  Sender: FDA-Public Use
  Company Number: F01200400385

PATIENT
  Age: 64 Year
  Sex: Male

DRUGS (5)
  1. OXALIPLATIN - SOLUTION - 250 MG [Suspect]
     Indication: COLON CANCER
     Dates: start: 20031128, end: 20031128
  2. CAPECITABINE - TABLET - 2000 MG [Suspect]
     Dates: start: 20031128, end: 20031219
  3. LORAZEPAM [Concomitant]
  4. METFORMIN HCL [Concomitant]
  5. INSULIN INJECTION, ISOPHANE, [Concomitant]

REACTIONS (1)
  - DUODENAL ULCER HAEMORRHAGE [None]
